FAERS Safety Report 17477398 (Version 1)
Quarter: 2020Q1

REPORT INFORMATION
  Report Type: Report from Study
  Country: CA (occurrence: CA)
  Receive Date: 20200228
  Receipt Date: 20200228
  Transmission Date: 20200409
  Serious: Yes (Other)
  Sender: FDA-Public Use
  Company Number: CA-JNJFOC-20190829628

PATIENT
  Age: 48 Year
  Sex: Female

DRUGS (1)
  1. SIMPONI [Suspect]
     Active Substance: GOLIMUMAB
     Indication: ANKYLOSING SPONDYLITIS
     Dosage: STRENGTH = 50 MG
     Route: 058
     Dates: start: 20140516

REACTIONS (7)
  - Post procedural infection [Recovered/Resolved]
  - Furuncle [Recovered/Resolved]
  - Arthralgia [Recovered/Resolved]
  - Appendicectomy [Recovered/Resolved]
  - Drug ineffective [Unknown]
  - Pharyngitis streptococcal [Recovered/Resolved]
  - Red blood cell sedimentation rate increased [Recovered/Resolved]

NARRATIVE: CASE EVENT DATE: 20181217
